FAERS Safety Report 18669461 (Version 1)
Quarter: 2020Q4

REPORT INFORMATION
  Report Type: Spontaneous
  Country: US (occurrence: US)
  Receive Date: 20201228
  Receipt Date: 20201228
  Transmission Date: 20210114
  Serious: No
  Sender: FDA-Public Use
  Company Number: US-TEVA-2020-US-1857531

PATIENT
  Sex: Female

DRUGS (2)
  1. AUSTEDO [Suspect]
     Active Substance: DEUTETRABENAZINE
     Indication: HUNTINGTON^S DISEASE
     Dosage: 9 MILLIGRAM DAILY; BEGAN TAKING AUSTEDO AT A DOSE OF ^9MG IN THE MORNING^
     Dates: start: 202010
  2. AUSTEDO [Suspect]
     Active Substance: DEUTETRABENAZINE
     Dosage: 18 MILLIGRAM DAILY; IS CURRENTLY TAKING ^9MG TWICE A DAY^
     Dates: start: 202010

REACTIONS (8)
  - Tremor [Unknown]
  - Head titubation [Unknown]
  - Gait disturbance [Unknown]
  - Drug titration error [Unknown]
  - Muscular weakness [Unknown]
  - Feeling abnormal [Unknown]
  - Feeling cold [Unknown]
  - Fatigue [Unknown]

NARRATIVE: CASE EVENT DATE: 2020
